FAERS Safety Report 8291863-0 (Version None)
Quarter: 2012Q2

REPORT INFORMATION
  Report Type: 
  Country: None (occurrence: None)
  Receive Date: 20120417
  Receipt Date: 20120410
  Transmission Date: 20120825
  Serious: Yes (Hospitalization)
  Sender: FDA-Public Use
  Company Number: US-ELI_LILLY_AND_COMPANY-US201204003444

PATIENT
  Age: 60 Year
  Sex: Male

DRUGS (14)
  1. NIACIN [Concomitant]
     Dosage: 500 MG, BID
  2. CALCITRATE [Concomitant]
     Dosage: 400 MG, QD
  3. PAIN RELIEVER [Concomitant]
     Dosage: 500 MG, PRN
  4. NABUMETONE [Concomitant]
     Dosage: 1000 MG, QD
  5. LISINOPRIL [Concomitant]
     Indication: BLOOD PRESSURE
     Dosage: 25 MG, UNK
  6. ASPIRIN [Concomitant]
     Dosage: 81 MG, UNK
  7. VITAMIN D [Concomitant]
     Dosage: 50000 IU, UNK
  8. SIMVASTATIN [Concomitant]
     Dosage: 40 MG, QD
  9. GABAPENTIN [Concomitant]
     Dosage: 1600 MG, QD
  10. FORTEO [Suspect]
     Indication: OSTEOPOROSIS
     Dosage: UNK UNK, QD
     Route: 065
  11. TRAMADOL HCL [Concomitant]
  12. FISH OIL [Concomitant]
     Dosage: 2000 MG, QD
  13. MULTI-VITAMIN [Concomitant]
     Dosage: UNK, QD
  14. MAGNESIUM [Concomitant]
     Dosage: 250 MG, QD

REACTIONS (1)
  - SPINAL OPERATION [None]
